FAERS Safety Report 6617509-2 (Version None)
Quarter: 2010Q1

REPORT INFORMATION
  Report Type: 
  Country: None (occurrence: None)
  Receive Date: 20100308
  Receipt Date: 20100303
  Transmission Date: 20100710
  Serious: Yes (Hospitalization)
  Sender: FDA-Public Use
  Company Number: DE-B.I. PHARMACEUTICALS,INC./RIDGEFIELD-2010-DE-01287DE

PATIENT
  Sex: Male

DRUGS (3)
  1. MICARDIS HCT [Suspect]
     Dosage: 1 ANZ
  2. HEPARIN [Suspect]
     Dosage: HEPARIN INJECTIONS IN HOSPITAL
     Dates: start: 20090401
  3. HEPARIN [Suspect]
     Dosage: 2X10 INJECTIONS
     Dates: start: 20090901

REACTIONS (7)
  - CARDIAC DISORDER [None]
  - DIZZINESS [None]
  - DRUG INTERACTION [None]
  - GAIT DISTURBANCE [None]
  - HAEMATOMA [None]
  - IMPAIRED DRIVING ABILITY [None]
  - NERVE COMPRESSION [None]
